FAERS Safety Report 25418013 (Version 1)
Quarter: 2025Q2

REPORT INFORMATION
  Report Type: Spontaneous
  Country: US (occurrence: None)
  Receive Date: 20250606
  Receipt Date: 20250606
  Transmission Date: 20250716
  Serious: Yes (Hospitalization)
  Sender: FDA-CTU
  Company Number: None

PATIENT
  Age: 83 Year
  Sex: Male

DRUGS (1)
  1. EMPAGLIFLOZIN [Suspect]
     Active Substance: EMPAGLIFLOZIN
     Indication: Diabetes mellitus

REACTIONS (12)
  - Syncope [None]
  - Fall [None]
  - Subdural haematoma [None]
  - Craniofacial fracture [None]
  - Craniofacial fracture [None]
  - Eye contusion [None]
  - Diverticulitis [None]
  - Palpitations [None]
  - Hypotension [None]
  - Tachycardia [None]
  - Troponin increased [None]
  - Acidosis [None]

NARRATIVE: CASE EVENT DATE: 20250304
